FAERS Safety Report 4650825-2 (Version None)
Quarter: 2005Q2

REPORT INFORMATION
  Report Type: 
  Country: None (occurrence: None)
  Receive Date: 20050429
  Receipt Date: 20050415
  Transmission Date: 20051028
  Serious: Yes (Death)
  Sender: FDA-Public Use
  Company Number: 10898

PATIENT
  Sex: 0

DRUGS (4)
  1. VINCRISTINE [Suspect]
     Indication: MULTIPLE MYELOMA
     Dosage: 1.5 MG PER_CYCLE, INJ
  2. EPIRUBICIN [Suspect]
     Indication: MULTIPLE MYELOMA
     Dosage: 30 MG/M2 OTH, INJ
  3. DEXAMETHASONE [Suspect]
     Indication: MULTIPLE MYELOMA
     Dosage: 20 MG/M2 OTH, PO
     Route: 048
  4. THALIDOMIDE [Suspect]
     Indication: MULTIPLE MYELOMA
     Dosage: 400, PO
     Route: 048

REACTIONS (1)
  - SEPTIC SHOCK [None]
